FAERS Safety Report 7758002-3 (Version None)
Quarter: 2011Q3

REPORT INFORMATION
  Report Type: 
  Country: None (occurrence: None)
  Receive Date: 20110919
  Receipt Date: 20110912
  Transmission Date: 20111222
  Serious: No
  Sender: FDA-Public Use
  Company Number: US-BIOGENIDEC-2011BI000426

PATIENT
  Age: 59 Year
  Sex: Female

DRUGS (2)
  1. TYSABRI [Suspect]
     Indication: MULTIPLE SCLEROSIS
     Route: 042
  2. TYSABRI [Suspect]
     Route: 042
     Dates: start: 20090717, end: 20100820

REACTIONS (7)
  - ANKLE FRACTURE [None]
  - BEDRIDDEN [None]
  - GAIT DISTURBANCE [None]
  - HYPOAESTHESIA [None]
  - DYSGRAPHIA [None]
  - FALL [None]
  - STRESS [None]
